FAERS Safety Report 13073251 (Version 2)
Quarter: 2020Q3

REPORT INFORMATION
  Report Type: Spontaneous
  Country: US (occurrence: US)
  Receive Date: 20161229
  Receipt Date: 20170623
  Transmission Date: 20201104
  Serious: Yes (Hospitalization, Other)
  Sender: FDA-Public Use
  Company Number: US-JNJFOC-20161224949

PATIENT
  Age: 71 Year
  Sex: Male
  Weight: 71.71 kg

DRUGS (16)
  1. PROPOFOL. [Suspect]
     Active Substance: PROPOFOL
     Indication: ANAESTHESIA
     Dosage: SINCE 08:00, 150 MG AT 08:00 THEN CONTINUOUS 08:05?11:15, 11:40?15:55,
     Route: 042
     Dates: start: 20160812, end: 20160812
  2. LIDOCAINE. [Suspect]
     Active Substance: LIDOCAINE
     Indication: ANAESTHESIA
     Dosage: SINCE 08:00, 100 MG AT 08:00 THEN 6 ML/HR CONTINUOUS FROM 08:15?11:15, 11:40?16:05,
     Route: 042
     Dates: start: 20160812, end: 20160812
  3. FENTANYL CITRATE. [Suspect]
     Active Substance: FENTANYL CITRATE
     Indication: ANAESTHESIA
     Dosage: GIVEN AT FOUR DIFFERENT TIMES
     Route: 042
     Dates: start: 20160812, end: 20160812
  4. ZOFRAN [Concomitant]
     Active Substance: ONDANSETRON HYDROCHLORIDE
     Indication: VOMITING
     Route: 065
     Dates: start: 20160812, end: 20160812
  5. ACETAMINOPHEN. [Suspect]
     Active Substance: ACETAMINOPHEN
     Indication: PAIN MANAGEMENT
     Dosage: SINGLE FROM 09:00 TO 09:10 FOR PAIN CONTROL
     Route: 042
     Dates: start: 20160812, end: 20160812
  6. ACETYLSALICYLIC ACID [Concomitant]
     Active Substance: ASPIRIN
     Indication: CORONARY ARTERY DISEASE
     Route: 065
     Dates: start: 19931202, end: 20160812
  7. PHENYLEPHRINE [Concomitant]
     Active Substance: PHENYLEPHRINE HYDROCHLORIDE
     Route: 065
     Dates: start: 20160812, end: 20160812
  8. ATORVASTATIN [Concomitant]
     Active Substance: ATORVASTATIN
     Indication: CORONARY ARTERY DISEASE
     Route: 065
     Dates: start: 20160404, end: 20160812
  9. LISINOPRIL. [Concomitant]
     Active Substance: LISINOPRIL
     Indication: HYPERTENSION
     Route: 065
     Dates: start: 20140107, end: 20160812
  10. ZOFRAN [Concomitant]
     Active Substance: ONDANSETRON HYDROCHLORIDE
     Indication: NAUSEA
     Route: 065
     Dates: start: 20160812, end: 20160812
  11. METOPROLOL TARTRATE. [Concomitant]
     Active Substance: METOPROLOL TARTRATE
     Indication: CORONARY ARTERY DISEASE
     Route: 065
     Dates: start: 20070102, end: 20160812
  12. DECADRON [Suspect]
     Active Substance: DEXAMETHASONE
     Indication: ANTIINFLAMMATORY THERAPY
     Dosage: SINGLE, ON 12AUG2016 AT 08:45,
     Route: 042
     Dates: start: 20160812, end: 20160812
  13. SUCCINYLCHOLINE [Suspect]
     Active Substance: SUCCINYLCHOLINE
     Indication: PARALYSIS
     Dosage: SINGLE AT 08:00
     Route: 042
     Dates: start: 20160812, end: 20160812
  14. ROCURONIUM BROMIDE. [Suspect]
     Active Substance: ROCURONIUM BROMIDE
     Indication: ANAESTHESIA
     Route: 042
     Dates: start: 20160812, end: 20160812
  15. EPHEDRINE. [Suspect]
     Active Substance: EPHEDRINE
     Indication: HYPOTENSION
     Dosage: SINGLE AT 11:30
     Route: 042
     Dates: start: 20160812, end: 20160812
  16. HYDROMORPHONE HYDROCHLORIDE. [Suspect]
     Active Substance: HYDROMORPHONE HYDROCHLORIDE
     Indication: PAIN MANAGEMENT
     Dosage: AT 17:15 AT 1 MG SINGLE
     Route: 042
     Dates: start: 20160812, end: 20160812

REACTIONS (2)
  - Postoperative delirium [Recovered/Resolved]
  - Cerebral infarction [Unknown]

NARRATIVE: CASE EVENT DATE: 20160812
